FAERS Safety Report 9844369 (Version 2)
Quarter: 2014Q2

REPORT INFORMATION
  Report Type: Report from Study
  Country: CL (occurrence: CL)
  Receive Date: 20140127
  Receipt Date: 20140401
  Transmission Date: 20141212
  Serious: Yes (Hospitalization)
  Sender: FDA-Public Use
  Company Number: PHHY2014CL008867

PATIENT
  Sex: Male

DRUGS (2)
  1. GLIVEC [Suspect]
     Indication: CHRONIC MYELOID LEUKAEMIA
     Dosage: 600 MG, UNK
     Dates: start: 20030902
  2. GLIVEC [Suspect]
     Dosage: 400 MG, UNK
     Dates: start: 20140122

REACTIONS (2)
  - Post procedural haemorrhage [Unknown]
  - Blood creatinine increased [Unknown]
